FAERS Safety Report 4338021-X (Version None)
Quarter: 2004Q2

REPORT INFORMATION
  Report Type: 
  Country: None (occurrence: None)
  Receive Date: 20040408
  Receipt Date: 20040323
  Transmission Date: 20050107
  Serious: No
  Sender: FDA-Public Use
  Company Number: 2004AP02050

PATIENT
  Age: 46 Year
  Sex: Female
  Weight: 51 kg

DRUGS (4)
  1. ARIMIDEX [Suspect]
     Indication: BREAST CANCER RECURRENT
     Dosage: 1 MG DAILY PO
     Route: 048
     Dates: start: 20020510, end: 20030307
  2. LEUPROLIDE ACETATE [Suspect]
     Indication: BREAST CANCER RECURRENT
     Dosage: 3.75 MG DAILY SQ
     Route: 058
     Dates: start: 20001201
  3. FURTULON [Concomitant]
  4. CYCLOPHOSPHAMIDE [Concomitant]

REACTIONS (3)
  - ARTHRALGIA [None]
  - FALL [None]
  - FOOT FRACTURE [None]
